FAERS Safety Report 4386357-9 (Version None)
Quarter: 2004Q2

REPORT INFORMATION
  Report Type: 
  Country: None (occurrence: None)
  Receive Date: 20040623
  Receipt Date: 20040602
  Transmission Date: 20050107
  Serious: Yes (Hospitalization)
  Sender: FDA-Public Use
  Company Number: EWC040639534

PATIENT
  Age: 51 Year
  Sex: Female
  Weight: 68.9467 kg

DRUGS (6)
  1. GEMCITABINE HYDROCHLORIDE-IV (GEMCITABINE) [Suspect]
     Indication: PANCREATIC CARCINOMA
     Dosage: 2000 MG/2 OTHER
     Route: 050
     Dates: start: 20040318
  2. TEGAFUR [Concomitant]
  3. COZAAR [Concomitant]
  4. GELOCATIL (PARACETAMOL) [Concomitant]
  5. LORAZEPAM [Concomitant]
  6. LEVOFOLINIC ACID [Concomitant]

REACTIONS (1)
  - PERIPHERAL EMBOLISM [None]
